FAERS Safety Report 9221585 (Version 1)
Quarter: 2013Q2

REPORT INFORMATION
  Report Type: Spontaneous
  Country: US (occurrence: None)
  Receive Date: 20130408
  Receipt Date: 20130408
  Transmission Date: 20140414
  Serious: Yes (Hospitalization)
  Sender: FDA-Public Use
  Company Number: None

PATIENT
  Age: 74 Year
  Sex: Male
  Weight: 90 kg

DRUGS (1)
  1. ELOXATIN [Suspect]
     Dosage: TOTAL DOSE 5710 MG
     Dates: start: 20081203, end: 20081203

REACTIONS (15)
  - Laryngitis [None]
  - Nausea [None]
  - Abdominal discomfort [None]
  - Vomiting [None]
  - Decreased appetite [None]
  - Fall [None]
  - Gingival bleeding [None]
  - Abdominal pain [None]
  - Thrombocytopenia [None]
  - Leukocytosis [None]
  - Alanine aminotransferase increased [None]
  - Aspartate aminotransferase increased [None]
  - Sepsis [None]
  - Renal failure [None]
  - Alcohol use [None]
